FAERS Safety Report 8842912 (Version 3)
Quarter: 2013Q1

REPORT INFORMATION
  Report Type: Spontaneous
  Country: DE (occurrence: DE)
  Receive Date: 20121016
  Receipt Date: 20130131
  Transmission Date: 20140127
  Serious: Yes (Other)
  Sender: FDA-Public Use
  Company Number: DE-UCBSA-068721

PATIENT
  Age: 81 Year
  Sex: Male

DRUGS (13)
  1. LEVETIRACETAM UCB [Suspect]
     Dosage: 1-0-1
     Route: 048
     Dates: start: 201208, end: 20121007
  2. KEPPRA [Suspect]
     Indication: CONVULSION
     Dosage: 1-0-1
     Route: 048
     Dates: start: 2007, end: 201208
  3. KEPPRA [Suspect]
     Indication: CONVULSION
     Dosage: 1-0-1
     Route: 048
     Dates: start: 20121008
  4. CARVEDILOL [Concomitant]
  5. FERRO SANOL DUODENAL [Concomitant]
  6. LONOLOX [Concomitant]
  7. MARCUMAR [Concomitant]
     Dates: end: 201211
  8. MARCUMAR [Concomitant]
     Dosage: HALF A TABLET, EXCEPT ON MONDAYS AND THURSDAYS
     Dates: start: 201211
  9. CLONISTADA [Concomitant]
  10. TORASEMID [Concomitant]
  11. CELADRIN [Concomitant]
  12. MIRCERA [Concomitant]
     Dosage: 0.3 ML PRE-FILLEDSYRINGE
     Dates: end: 20121028
  13. TAVOR [Concomitant]
     Indication: CONVULSION
     Dosage: 1MG: 0.5 TO 1 TABLET IF REQUIRED

REACTIONS (3)
  - Renal impairment [Recovering/Resolving]
  - Blood creatinine increased [Recovering/Resolving]
  - Erythema [Recovering/Resolving]
